FAERS Safety Report 7793411-8 (Version None)
Quarter: 2011Q3

REPORT INFORMATION
  Report Type: 
  Country: None (occurrence: None)
  Receive Date: 20110930
  Receipt Date: 20110930
  Transmission Date: 20111222
  Serious: Yes (Hospitalization)
  Sender: FDA-Public Use
  Company Number: None

PATIENT
  Age: 61 Year
  Sex: Female

DRUGS (2)
  1. IBUPROFEN [Suspect]
     Indication: PAIN
     Dosage: 400MG TID PRN PO
     Route: 048
     Dates: start: 20110627, end: 20110722
  2. PHENYTOIN SODIUM [Suspect]
     Indication: CONVULSION
     Dosage: 150 Q AM  100 MG PM BID PO
     Route: 048
     Dates: start: 20100224, end: 20110722

REACTIONS (1)
  - ATAXIA [None]
